FAERS Safety Report 23285774 (Version 1)
Quarter: 2023Q4

REPORT INFORMATION
  Report Type: Spontaneous
  Country: US (occurrence: US)
  Receive Date: 20231212
  Receipt Date: 20231212
  Transmission Date: 20240110
  Serious: Yes (Hospitalization)
  Sender: FDA-Public Use
  Company Number: US-TEVA-VS-3134823

PATIENT
  Age: 24 Year

DRUGS (5)
  1. PROPYLTHIOURACIL [Suspect]
     Active Substance: PROPYLTHIOURACIL
     Indication: Goitre
     Dosage: TIME INTERVAL: 0.33333333 DAYS
     Route: 065
  2. DEXAMETHASONE [Suspect]
     Active Substance: DEXAMETHASONE
     Indication: Product used for unknown indication
     Route: 065
  3. METOPROLOL [Suspect]
     Active Substance: METOPROLOL
     Indication: Goitre
     Dosage: TIME INTERVAL: 0.33333333 DAYS
     Route: 065
  4. AUGMENTIN [Suspect]
     Active Substance: AMOXICILLIN\CLAVULANATE POTASSIUM
     Indication: Product used for unknown indication
     Route: 065
  5. METHIMAZOLE [Suspect]
     Active Substance: METHIMAZOLE
     Indication: Goitre
     Route: 065

REACTIONS (5)
  - Drug ineffective [Unknown]
  - Leukopenia [Unknown]
  - Maternal exposure during pregnancy [Unknown]
  - Transaminases increased [Recovered/Resolved]
  - Live birth [Unknown]
